FAERS Safety Report 18943232 (Version 5)
Quarter: 2021Q3

REPORT INFORMATION
  Report Type: Report from Study
  Country: None (occurrence: US)
  Receive Date: 20210226
  Receipt Date: 20210701
  Transmission Date: 20211014
  Serious: Yes (Other)
  Sender: FDA-Public Use
  Company Number: US-ABBVIE-21K-163-3722083-00

PATIENT
  Age: 62 Year
  Sex: Female

DRUGS (4)
  1. HUMIRA [Suspect]
     Active Substance: ADALIMUMAB
     Route: 058
     Dates: start: 2021, end: 2021
  2. HUMIRA [Suspect]
     Active Substance: ADALIMUMAB
     Route: 058
     Dates: start: 2021, end: 20210624
  3. HUMIRA [Suspect]
     Active Substance: ADALIMUMAB
     Indication: PSORIASIS
     Route: 058
     Dates: start: 202101, end: 20210121
  4. HUMIRA [Suspect]
     Active Substance: ADALIMUMAB
     Indication: PSORIATIC ARTHROPATHY
     Route: 058
     Dates: start: 20201112, end: 20210107

REACTIONS (18)
  - Nasal congestion [Unknown]
  - Psoriasis [Unknown]
  - Peripheral swelling [Not Recovered/Not Resolved]
  - Pain [Unknown]
  - Blood pressure increased [Unknown]
  - Carpal tunnel syndrome [Not Recovered/Not Resolved]
  - Pain in jaw [Unknown]
  - Back pain [Unknown]
  - Drug ineffective [Unknown]
  - Pain in extremity [Unknown]
  - Discomfort [Unknown]
  - Device issue [Unknown]
  - Emotional distress [Unknown]
  - Gait disturbance [Recovered/Resolved]
  - Onychoclasis [Recovering/Resolving]
  - Decreased appetite [Unknown]
  - Joint range of motion decreased [Not Recovered/Not Resolved]
  - Fatigue [Unknown]

NARRATIVE: CASE EVENT DATE: 202012
